FAERS Safety Report 25504304 (Version 2)
Quarter: 2025Q3

REPORT INFORMATION
  Report Type: Spontaneous
  Country: US (occurrence: US)
  Receive Date: 20250702
  Receipt Date: 20250731
  Transmission Date: 20251020
  Serious: No
  Sender: PFIZER
  Company Number: US-PFIZER INC-202500131556

PATIENT
  Age: 29 Year
  Sex: Female

DRUGS (1)
  1. CIBINQO [Suspect]
     Active Substance: ABROCITINIB
     Indication: Dermatitis atopic
     Dosage: 100 MG, 1X/DAY, (INCREASE DOSE UP TO 200 MG  AS NEEDED)
     Route: 048

REACTIONS (1)
  - Dermatitis atopic [Not Recovered/Not Resolved]
